FAERS Safety Report 4887546-7 (Version None)
Quarter: 2006Q1

REPORT INFORMATION
  Report Type: 
  Country: None (occurrence: None)
  Receive Date: 20060123
  Receipt Date: 20060113
  Transmission Date: 20060701
  Serious: Yes (Other)
  Sender: FDA-Public Use
  Company Number: FR-JNJFOC-20051205070

PATIENT
  Sex: Female
  Weight: 35 kg

DRUGS (2)
  1. RISPERDAL [Suspect]
     Route: 048
     Dates: start: 20050530, end: 20050606
  2. RISPERDAL [Suspect]
     Route: 048
     Dates: start: 20050530, end: 20050606

REACTIONS (2)
  - ACCOMMODATION DISORDER [None]
  - VISUAL FIELD DEFECT [None]
